FAERS Safety Report 7228510-2 (Version None)
Quarter: 2011Q1

REPORT INFORMATION
  Report Type: 
  Country: None (occurrence: None)
  Receive Date: 20110117
  Receipt Date: 20110107
  Transmission Date: 20110831
  Serious: Yes (Hospitalization, Other)
  Sender: FDA-Public Use
  Company Number: ES-BIOGENIDEC-2010BI034306

PATIENT
  Age: 62 Year
  Sex: Male

DRUGS (5)
  1. ZOLPIDEM [Concomitant]
     Indication: SLEEP DISORDER
  2. UROLOSINE [Concomitant]
  3. FLUOXETINE [Concomitant]
  4. TYSABRI [Suspect]
     Indication: MULTIPLE SCLEROSIS
     Route: 042
     Dates: start: 20080521, end: 20100426
  5. SIMVASTATIN [Concomitant]

REACTIONS (5)
  - MULTIPLE SCLEROSIS RELAPSE [None]
  - PYREXIA [None]
  - IMMUNE RECONSTITUTION SYNDROME [None]
  - VENOUS THROMBOSIS [None]
  - PULMONARY EMBOLISM [None]
